FAERS Safety Report 7766870-4 (Version None)
Quarter: 2011Q3

REPORT INFORMATION
  Report Type: 
  Country: None (occurrence: None)
  Receive Date: 20110922
  Receipt Date: 20110919
  Transmission Date: 20111222
  Serious: No
  Sender: FDA-Public Use
  Company Number: US-PFIZER INC-2011222418

PATIENT
  Sex: Female
  Weight: 81.633 kg

DRUGS (8)
  1. PROCARDIA [Suspect]
     Indication: HYPERTENSION
     Dosage: UNK
  2. PROCARDIA [Suspect]
     Dosage: UNK
     Dates: start: 20050101, end: 20110901
  3. METOPROLOL [Concomitant]
     Indication: HYPERTENSION
     Dosage: UNK
  4. SIMVASTATIN [Concomitant]
     Indication: BLOOD CHOLESTEROL ABNORMAL
     Dosage: UNK
  5. ACETYLSALICYLIC ACID [Concomitant]
     Dosage: 81 MG, UNK
  6. NEXIUM [Concomitant]
     Dosage: UNK
  7. ALBUTEROL SULFATE [Concomitant]
     Indication: ASTHMA
     Dosage: UNK
  8. NITROGLYCERIN [Concomitant]

REACTIONS (1)
  - SINUSITIS [None]
